FAERS Safety Report 10680816 (Version 2)
Quarter: 2014Q4

REPORT INFORMATION
  Report Type: Spontaneous
  Country: US (occurrence: US)
  Receive Date: 20141229
  Receipt Date: 20141229
  Transmission Date: 20150529
  Serious: No
  Sender: FDA-Public Use
  Company Number: US-ENDO PHARMACEUTICALS INC.-ZOLP20140005

PATIENT
  Age: 77 Year
  Sex: Female
  Weight: 52.21 kg

DRUGS (1)
  1. ZOLPIDEM TARTRATE TABLETS 10MG [Suspect]
     Active Substance: ZOLPIDEM TARTRATE
     Indication: INSOMNIA
     Route: 048
     Dates: start: 20121108, end: 20121108

REACTIONS (5)
  - Sleep disorder [Recovered/Resolved]
  - Dizziness [Not Recovered/Not Resolved]
  - Abnormal behaviour [Recovered/Resolved]
  - Fall [Recovered/Resolved with Sequelae]
  - Back pain [Not Recovered/Not Resolved]

NARRATIVE: CASE EVENT DATE: 20121108
